FAERS Safety Report 4760904-7 (Version None)
Quarter: 2005Q3

REPORT INFORMATION
  Report Type: 
  Country: None (occurrence: None)
  Receive Date: 20050902
  Receipt Date: 20040721
  Transmission Date: 20060218
  Serious: Yes (Hospitalization)
  Sender: FDA-Public Use
  Company Number: JP-ABBOTT-04P-087-0267972-00

PATIENT
  Sex: Female

DRUGS (10)
  1. KALETRA [Suspect]
     Indication: HIV INFECTION
     Route: 048
     Dates: start: 20021005
  2. LAMIVUDINE [Suspect]
     Indication: HIV INFECTION
     Route: 048
     Dates: start: 20021005
  3. STAVUDINE [Suspect]
     Indication: HIV INFECTION
     Route: 048
     Dates: start: 20021005, end: 20040219
  4. ZIDOVUDINE [Concomitant]
     Indication: HIV INFECTION
     Route: 048
     Dates: start: 20040220
  5. QUETIAPINE FUMARATE [Concomitant]
     Indication: ENCEPHALOPATHY
     Route: 048
     Dates: start: 20021005, end: 20030319
  6. QUETIAPINE FUMARATE [Concomitant]
     Route: 048
     Dates: start: 20021014, end: 20040125
  7. QUETIAPINE FUMARATE [Concomitant]
     Route: 048
     Dates: start: 20040126
  8. LORMETAZEPAM [Concomitant]
     Indication: ENCEPHALOPATHY
     Route: 048
     Dates: start: 20021005, end: 20030319
  9. LORAZEPAM [Concomitant]
     Indication: ENCEPHALOPATHY
     Route: 048
     Dates: start: 20021014, end: 20021202
  10. BACTRIM [Concomitant]
     Indication: INFECTION PROPHYLAXIS
     Route: 048
     Dates: start: 20021014

REACTIONS (5)
  - ATYPICAL MYCOBACTERIAL INFECTION [None]
  - BLOOD CHOLESTEROL INCREASED [None]
  - HERPES ZOSTER [None]
  - HYPERLIPIDAEMIA [None]
  - LIPOATROPHY [None]
